FAERS Safety Report 12784960 (Version 1)
Quarter: 2016Q3

REPORT INFORMATION
  Report Type: Spontaneous
  Country: US (occurrence: US)
  Receive Date: 20160927
  Receipt Date: 20160927
  Transmission Date: 20161109
  Serious: No
  Sender: FDA-Public Use
  Company Number: US-IGSA-GTI003491

PATIENT
  Age: 66 Year
  Sex: Female
  Weight: 71 kg

DRUGS (25)
  1. VITAMIN B12 [Concomitant]
     Active Substance: CYANOCOBALAMIN
  2. PRAMIPEXOLE DIHYDROCHLORIDE. [Concomitant]
     Active Substance: PRAMIPEXOLE DIHYDROCHLORIDE
  3. RANITIDINE. [Concomitant]
     Active Substance: RANITIDINE
  4. SYMBICORT [Concomitant]
     Active Substance: BUDESONIDE\FORMOTEROL FUMARATE DIHYDRATE
  5. ALLEGRA [Concomitant]
     Active Substance: FEXOFENADINE HYDROCHLORIDE
  6. MIRALAX [Concomitant]
     Active Substance: POLYETHYLENE GLYCOL 3350
  7. PREDNISONE. [Concomitant]
     Active Substance: PREDNISONE
  8. ALBUTEROL /00139501/ [Concomitant]
     Active Substance: ALBUTEROL
  9. DILTIAZEM. [Concomitant]
     Active Substance: DILTIAZEM
  10. OXYCODONE [Concomitant]
     Active Substance: OXYCODONE
  11. VITAMIN D /00107901/ [Concomitant]
     Active Substance: ERGOCALCIFEROL
  12. IBUPROFEN. [Concomitant]
     Active Substance: IBUPROFEN
  13. VITAMIN C [Concomitant]
     Active Substance: ASCORBIC ACID
  14. VITAMIN E /00110501/ [Concomitant]
     Active Substance: TOCOPHEROL
  15. PROLASTIN-C [Suspect]
     Active Substance: .ALPHA.1-PROTEINASE INHIBITOR HUMAN
     Indication: ALPHA-1 ANTI-TRYPSIN DEFICIENCY
     Route: 042
     Dates: start: 201507, end: 20150828
  16. SERTRALINE [Concomitant]
     Active Substance: SERTRALINE HYDROCHLORIDE
  17. FERROUS GLUCONATE [Concomitant]
     Active Substance: FERROUS GLUCONATE
  18. MAGNESIUM [Concomitant]
     Active Substance: MAGNESIUM
  19. NEXIUM [Concomitant]
     Active Substance: ESOMEPRAZOLE MAGNESIUM
  20. XANAX [Concomitant]
     Active Substance: ALPRAZOLAM
  21. FLUTICASONE [Concomitant]
     Active Substance: FLUTICASONE\FLUTICASONE PROPIONATE
  22. LYRICA [Concomitant]
     Active Substance: PREGABALIN
  23. MONTELUKAST [Concomitant]
     Active Substance: MONTELUKAST SODIUM
  24. TRAMADOL. [Concomitant]
     Active Substance: TRAMADOL
  25. SPIRIVA [Concomitant]
     Active Substance: TIOTROPIUM BROMIDE MONOHYDRATE

REACTIONS (2)
  - Pruritus [Unknown]
  - Rash [Unknown]

NARRATIVE: CASE EVENT DATE: 201508
